FAERS Safety Report 7725382-4 (Version None)
Quarter: 2011Q3

REPORT INFORMATION
  Report Type: 
  Country: None (occurrence: None)
  Receive Date: 20110902
  Receipt Date: 20110824
  Transmission Date: 20111222
  Serious: Yes (Other)
  Sender: FDA-Public Use
  Company Number: US-JNJFOC-20110811889

PATIENT
  Age: 50 Year
  Sex: Male

DRUGS (3)
  1. NUCYNTA [Suspect]
     Indication: PRODUCT USED FOR UNKNOWN INDICATION
     Route: 048
     Dates: start: 20110701
  2. TRAZODONE [Concomitant]
     Route: 065
  3. BLOOD PRESSURE MEDICATION NOS [Concomitant]
     Indication: BLOOD PRESSURE
     Route: 065

REACTIONS (2)
  - ASTHMA [None]
  - CONTRAINDICATION TO MEDICAL TREATMENT [None]
